FAERS Safety Report 6187782-6 (Version None)
Quarter: 2009Q2

REPORT INFORMATION
  Report Type: 
  Country: None (occurrence: None)
  Receive Date: 20090513
  Receipt Date: 20090505
  Transmission Date: 20091009
  Serious: Yes (Other)
  Sender: FDA-Public Use
  Company Number: FR-BRISTOL-MYERS SQUIBB COMPANY-14620355

PATIENT
  Age: 79 Year
  Sex: Female

DRUGS (6)
  1. ERBITUX [Suspect]
     Indication: COLON CANCER
  2. IRINOTECAN HCL [Concomitant]
  3. SERTRALINE HCL [Concomitant]
  4. AMLODIPINE [Concomitant]
  5. AMILORIDE HCL AND HYDROCHLOROTHIAZIDE [Concomitant]
  6. SPIRONOLACTONE [Concomitant]

REACTIONS (2)
  - PURPURA [None]
  - VASCULITIS [None]
